FAERS Safety Report 6818230-8 (Version None)
Quarter: 2010Q3

REPORT INFORMATION
  Report Type: 
  Country: None (occurrence: None)
  Receive Date: 20100706
  Receipt Date: 20070315
  Transmission Date: 20110219
  Serious: Yes (Other)
  Sender: FDA-Public Use
  Company Number: US-PFIZER INC-2007021943

PATIENT
  Age: 16 Year

DRUGS (1)
  1. ZITHROMAX [Suspect]

REACTIONS (1)
  - STEVENS-JOHNSON SYNDROME [None]
